FAERS Safety Report 19008322 (Version 1)
Quarter: 2021Q1

REPORT INFORMATION
  Report Type: Spontaneous
  Country: US (occurrence: US)
  Receive Date: 20210316
  Receipt Date: 20210316
  Transmission Date: 20210420
  Serious: Yes (Death, Other)
  Sender: FDA-Public Use
  Company Number: US-AMGEN-USASP2021039181

PATIENT

DRUGS (3)
  1. MELPHALAN. [Concomitant]
     Active Substance: MELPHALAN
     Dosage: 100 MILLIGRAM/SQ. METER
     Route: 065
  2. FILGRASTIM [Suspect]
     Active Substance: FILGRASTIM
     Indication: AUTOLOGOUS HAEMATOPOIETIC STEM CELL TRANSPLANT
     Dosage: UNK
     Route: 065
  3. MELPHALAN. [Concomitant]
     Active Substance: MELPHALAN
     Dosage: 200 MILLIGRAM/SQ. METER
     Route: 065

REACTIONS (4)
  - Disease progression [Unknown]
  - Therapeutic product effect incomplete [Unknown]
  - Death [Fatal]
  - Off label use [Unknown]
